FAERS Safety Report 23564862 (Version 1)
Quarter: 2024Q1

REPORT INFORMATION
  Report Type: Spontaneous
  Country: BR (occurrence: BR)
  Receive Date: 20240226
  Receipt Date: 20240226
  Transmission Date: 20240410
  Serious: Yes (Hospitalization, Other)
  Sender: FDA-Public Use
  Company Number: BR-AMGEN-BRASP2024035863

PATIENT
  Age: 71 Year
  Sex: Female

DRUGS (7)
  1. PROLIA [Suspect]
     Active Substance: DENOSUMAB
     Indication: Osteopenia
     Dosage: UNK, Q6MO
     Route: 065
  2. PROLIA [Suspect]
     Active Substance: DENOSUMAB
  3. EVENITY [Suspect]
     Active Substance: ROMOSOZUMAB-AQQG
     Indication: Osteoporosis
     Dosage: UNK
     Route: 065
  4. LETROZOLE [Concomitant]
     Active Substance: LETROZOLE
     Indication: Neoplasm malignant
     Dosage: 2.5 MILLIGRAM
  5. METAMUCIL [Concomitant]
     Active Substance: PLANTAGO SEED
     Indication: Constipation
     Dosage: 0.562 GRAM
  6. DUPLOSTAT [Concomitant]
     Indication: Blood cholesterol
     Dosage: 800 MILLIGRAM
  7. ADERAMIN [Concomitant]
     Indication: Blood cholesterol
     Dosage: 2000 UL

REACTIONS (7)
  - Breast cancer [Recovering/Resolving]
  - Osteoporosis [Recovering/Resolving]
  - Muscle atrophy [Recovering/Resolving]
  - Spinal fracture [Recovering/Resolving]
  - Drug ineffective for unapproved indication [Unknown]
  - Visual impairment [Recovering/Resolving]
  - Off label use [Unknown]
